FAERS Safety Report 9680349 (Version 3)
Quarter: 2014Q2

REPORT INFORMATION
  Report Type: Report from Study
  Country: CA (occurrence: CA)
  Receive Date: 20131111
  Receipt Date: 20140522
  Transmission Date: 20141212
  Serious: Yes (Other)
  Sender: FDA-Public Use
  Company Number: CA-ROCHE-1205165

PATIENT
  Age: 45 Year
  Sex: Female
  Weight: 61.2 kg

DRUGS (9)
  1. RITUXAN [Suspect]
     Indication: RHEUMATOID ARTHRITIS
     Route: 042
     Dates: start: 20120829
  2. RITUXAN [Suspect]
     Indication: ANKYLOSING SPONDYLITIS
  3. ARTHROTEC [Suspect]
     Indication: JOINT STIFFNESS
     Route: 065
  4. DIPHENHYDRAMINE HCL [Concomitant]
     Indication: PREMEDICATION
     Route: 048
     Dates: start: 20120829
  5. ACETAMINOPHEN [Concomitant]
     Indication: PREMEDICATION
     Route: 048
     Dates: start: 20120829
  6. METHYLPREDNISOLONE [Concomitant]
     Indication: PREMEDICATION
     Route: 042
     Dates: start: 20120829
  7. PREDNISONE [Concomitant]
  8. CELEXA (CANADA) [Concomitant]
  9. NEXIUM [Concomitant]

REACTIONS (3)
  - Trigeminal neuralgia [Unknown]
  - Infusion related reaction [Recovered/Resolved]
  - Joint stiffness [Unknown]
